FAERS Safety Report 8190951-7 (Version None)
Quarter: 2012Q1

REPORT INFORMATION
  Report Type: 
  Country: None (occurrence: None)
  Receive Date: 20120307
  Receipt Date: 20120224
  Transmission Date: 20120608
  Serious: Yes (Hospitalization)
  Sender: FDA-Public Use
  Company Number: US-ACTELION-A-NJ2011-55116

PATIENT

DRUGS (6)
  1. VENTAVIS [Concomitant]
     Indication: PULMONARY ARTERIAL HYPERTENSION
     Dosage: UNK MG, BID
     Route: 055
     Dates: start: 20100318
  2. LASIX [Concomitant]
  3. WARFARIN SODIUM [Concomitant]
  4. EPOPROSTENOL SODIUM [Suspect]
     Indication: PULMONARY ARTERIAL HYPERTENSION
     Dosage: 11.8 NG/KG, PER MIN
     Route: 041
     Dates: start: 20110722
  5. TRACLEER [Concomitant]
     Indication: PULMONARY ARTERIAL HYPERTENSION
     Dosage: 125 MG, BID
     Route: 048
     Dates: start: 20061211
  6. DIGOXIN [Concomitant]

REACTIONS (5)
  - PANIC ATTACK [None]
  - EPISTAXIS [None]
  - HAEMOGLOBIN DECREASED [None]
  - NAUSEA [None]
  - VOMITING [None]
